FAERS Safety Report 5407675-9 (Version None)
Quarter: 2007Q3

REPORT INFORMATION
  Report Type: 
  Country: None (occurrence: None)
  Receive Date: 20070713
  Receipt Date: 20070301
  Transmission Date: 20080115
  Serious: Yes (Other)
  Sender: FDA-Public Use
  Company Number: US-JNJFOC-20070501174

PATIENT
  Age: 34 Year
  Sex: Female
  Weight: 99.7913 kg

DRUGS (6)
  1. ORTHO EVRA [Suspect]
     Indication: DRUG USE FOR UNKNOWN INDICATION
     Dosage: TRANSDERMAL
     Route: 062
     Dates: start: 20030101, end: 20030101
  2. PRINIVIL [Concomitant]
  3. PROZAC [Concomitant]
  4. DETROL [Concomitant]
  5. HYDROCHLOROTHIAZIDE [Concomitant]
  6. PLAVIX [Concomitant]

REACTIONS (1)
  - CEREBROVASCULAR ACCIDENT [None]
